FAERS Safety Report 17319671 (Version 1)
Quarter: 2020Q1

REPORT INFORMATION
  Report Type: Spontaneous
  Country: GB (occurrence: GB)
  Receive Date: 20200125
  Receipt Date: 20200125
  Transmission Date: 20200409
  Serious: Yes (Other)
  Sender: FDA-Public Use
  Company Number: GB-DRREDDYS-GER/UKI/20/0118831

PATIENT
  Age: 5 Year
  Sex: Male

DRUGS (1)
  1. MONTELUKAST [Suspect]
     Active Substance: MONTELUKAST SODIUM
     Indication: ASTHMA EXERCISE INDUCED
     Route: 048
     Dates: start: 20120606, end: 20190701

REACTIONS (5)
  - Sleep terror [Unknown]
  - Obsessive-compulsive disorder [Unknown]
  - Sensory overload [Unknown]
  - Aggression [Recovering/Resolving]
  - Tic [Recovering/Resolving]

NARRATIVE: CASE EVENT DATE: 20120606
